FAERS Safety Report 8990696 (Version 1)
Quarter: 2012Q4

REPORT INFORMATION
  Report Type: Report from Study
  Country: FR (occurrence: FR)
  Receive Date: 20121228
  Receipt Date: 20121228
  Transmission Date: 20130627
  Serious: Yes (Hospitalization)
  Sender: FDA-Public Use
  Company Number: FR-ROCHE-1170336

PATIENT
  Age: 77 Year
  Sex: Male
  Weight: 78 kg

DRUGS (3)
  1. RITUXIMAB [Suspect]
     Indication: CHRONIC LYMPHOCYTIC LEUKAEMIA
     Dosage: last dose prior to SAE 28/Sep/2012
     Route: 042
     Dates: start: 20120928
  2. FLUDARABINE [Suspect]
     Indication: CHRONIC LYMPHOCYTIC LEUKAEMIA
     Dosage: last dose taken prior to SAE on 01/Oct/2012
     Route: 048
     Dates: start: 20120929
  3. ENDOXAN [Suspect]
     Indication: CHRONIC LYMPHOCYTIC LEUKAEMIA
     Dosage: last dose taken prior to SAE on 01/Oct/2012
     Route: 048
     Dates: start: 20120929

REACTIONS (3)
  - Erysipelas [Recovered/Resolved]
  - Skin ulcer [Recovered/Resolved]
  - Deep vein thrombosis [Recovered/Resolved]
